FAERS Safety Report 23038720 (Version 1)
Quarter: 2023Q4

REPORT INFORMATION
  Report Type: Spontaneous
  Country: US (occurrence: US)
  Receive Date: 20231006
  Receipt Date: 20231006
  Transmission Date: 20240109
  Serious: Yes (Life-Threatening, Hospitalization, Other)
  Sender: FDA-Public Use
  Company Number: US-drreddys-SPO/USA/23/0178480

PATIENT
  Age: 27 Year
  Sex: Male

DRUGS (1)
  1. VALPROIC ACID [Suspect]
     Active Substance: VALPROIC ACID
     Indication: Product used for unknown indication
     Route: 048

REACTIONS (14)
  - Hypocalcaemia [Recovered/Resolved]
  - Respiratory failure [Recovered/Resolved]
  - Toxicity to various agents [Recovered/Resolved]
  - Nephrogenic diabetes insipidus [Recovered/Resolved]
  - Electrocardiogram QT prolonged [Recovered/Resolved]
  - Hyperammonaemia [Recovered/Resolved]
  - Sinus tachycardia [Recovered/Resolved]
  - Pancreatitis acute [Recovered/Resolved]
  - Hypoglycaemia [Recovered/Resolved]
  - Confusional state [Recovered/Resolved]
  - Hypotension [Recovered/Resolved]
  - Lethargy [Recovered/Resolved]
  - Thrombocytopenia [Recovered/Resolved]
  - Intentional overdose [Recovered/Resolved]
